FAERS Safety Report 12781635 (Version 2)
Quarter: 2016Q3

REPORT INFORMATION
  Report Type: Spontaneous
  Country: TW (occurrence: TW)
  Receive Date: 20160926
  Receipt Date: 20160930
  Transmission Date: 20161109
  Serious: Yes (Life-Threatening, Hospitalization)
  Sender: FDA-Public Use
  Company Number: TW-MYLANLABS-2016M1041002

PATIENT

DRUGS (2)
  1. CLOZAPINE. [Suspect]
     Active Substance: CLOZAPINE
     Dosage: 100 MG, UNK
     Route: 048
     Dates: start: 19920307
  2. CLOZAPINE. [Suspect]
     Active Substance: CLOZAPINE
     Indication: SCHIZOPHRENIA
     Dosage: 100 MG, UNK
     Route: 048

REACTIONS (7)
  - Discomfort [Unknown]
  - Treatment noncompliance [Unknown]
  - Loss of consciousness [Unknown]
  - Aphasia [Unknown]
  - Nausea [Unknown]
  - Vomiting [Unknown]
  - Salivary hypersecretion [Unknown]
